FAERS Safety Report 4465127-7 (Version None)
Quarter: 2004Q3

REPORT INFORMATION
  Report Type: 
  Country: None (occurrence: None)
  Receive Date: 20040928
  Receipt Date: 20040928
  Transmission Date: 20050211
  Serious: Yes (Life-Threatening, Hospitalization)
  Sender: FDA-Public Use
  Company Number: None

PATIENT
  Sex: Male

DRUGS (9)
  1. CYTARABINE [Suspect]
     Indication: ACUTE MYELOID LEUKAEMIA
     Dosage: 5500 MG   Q12HR   INTRAVENOUS
     Route: 042
  2. GABAPENTIN [Concomitant]
  3. COMPAZINE [Concomitant]
  4. THIAMINE [Concomitant]
  5. PYRIDOXINE [Concomitant]
  6. POTASSIUM CHLORIDE [Concomitant]
  7. NORTRIPTYLINE HCL [Concomitant]
  8. MULTI-VITAMIN [Concomitant]
  9. CYANOCOBALAMIN [Concomitant]

REACTIONS (1)
  - FEBRILE NEUTROPENIA [None]
